FAERS Safety Report 13075907 (Version 1)
Quarter: 2016Q4

REPORT INFORMATION
  Report Type: Spontaneous
  Country: None (occurrence: US)
  Receive Date: 20161229
  Receipt Date: 20161229
  Transmission Date: 20170207
  Serious: Yes (Hospitalization)
  Sender: FDA-Public Use
  Company Number: None

PATIENT
  Age: 44 Year
  Sex: Female
  Weight: 104 kg

DRUGS (4)
  1. CARBOPLATIN. [Suspect]
     Active Substance: CARBOPLATIN
     Dates: end: 20161118
  2. DOXORUBICIN HYDROCHLORIDE. [Suspect]
     Active Substance: DOXORUBICIN HYDROCHLORIDE
     Dates: end: 20160826
  3. CYCLOPHOSPHAMIDE. [Suspect]
     Active Substance: CYCLOPHOSPHAMIDE
     Dates: end: 20160826
  4. TAXOL [Suspect]
     Active Substance: PACLITAXEL
     Dates: end: 20161202

REACTIONS (5)
  - Pleuritic pain [None]
  - Nausea [None]
  - Pulmonary embolism [None]
  - Hypomagnesaemia [None]
  - Hypokalaemia [None]

NARRATIVE: CASE EVENT DATE: 20161218
